FAERS Safety Report 20514570 (Version 1)
Quarter: 2022Q1

REPORT INFORMATION
  Report Type: Spontaneous
  Country: BR (occurrence: BR)
  Receive Date: 20220224
  Receipt Date: 20220224
  Transmission Date: 20220423
  Serious: Yes (Life-Threatening)
  Sender: FDA-Public Use
  Company Number: BR-NOVARTISPH-NVSC2022BR042194

PATIENT
  Sex: Female

DRUGS (1)
  1. DIOVAN [Suspect]
     Active Substance: VALSARTAN
     Indication: Hypertension
     Dosage: 80 MG, MORE THAN 5 YEARS AGO
     Route: 065

REACTIONS (20)
  - Swelling [Not Recovered/Not Resolved]
  - Pruritus [Recovering/Resolving]
  - Swelling face [Not Recovered/Not Resolved]
  - Ear inflammation [Not Recovered/Not Resolved]
  - Haematoma [Recovered/Resolved]
  - Erythema [Not Recovered/Not Resolved]
  - Fall [Recovered/Resolved]
  - Contusion [Not Recovered/Not Resolved]
  - Accident [Not Recovered/Not Resolved]
  - Neck pain [Recovered/Resolved]
  - Neck pain [Recovering/Resolving]
  - Memory impairment [Not Recovered/Not Resolved]
  - Discomfort [Not Recovered/Not Resolved]
  - Pain [Recovering/Resolving]
  - Eye swelling [Not Recovered/Not Resolved]
  - Skin discolouration [Not Recovered/Not Resolved]
  - Acarodermatitis [Not Recovered/Not Resolved]
  - Burning sensation [Not Recovered/Not Resolved]
  - Headache [Not Recovered/Not Resolved]
  - Dermatitis [Not Recovered/Not Resolved]
